FAERS Safety Report 14309884 (Version 1)
Quarter: 2017Q4

REPORT INFORMATION
  Report Type: Spontaneous
  Country: US (occurrence: US)
  Receive Date: 20171220
  Receipt Date: 20171220
  Transmission Date: 20180321
  Serious: Yes (Other)
  Sender: FDA-Public Use
  Company Number: None

PATIENT
  Age: 80 Year
  Sex: Female
  Weight: 71.67 kg

DRUGS (4)
  1. BAYER LOW DOSE 81 MG ASPIRIN [Concomitant]
  2. ACYCLOVIR 800MG TABLETS [Suspect]
     Active Substance: ACYCLOVIR
     Indication: HERPES ZOSTER
     Dosage: 1 TABLET 3 TIMES A DAY BY MOUTH
     Route: 048
     Dates: start: 20170907, end: 20170911
  3. XARELTO [Concomitant]
     Active Substance: RIVAROXABAN
  4. TYLENOL EXTRA STRENGTH [Concomitant]
     Active Substance: ACETAMINOPHEN

REACTIONS (1)
  - Thrombosis [None]

NARRATIVE: CASE EVENT DATE: 20170911
